FAERS Safety Report 9721877 (Version 2)
Quarter: 2013Q4

REPORT INFORMATION
  Report Type: Spontaneous
  Country: US (occurrence: US)
  Receive Date: 20131201
  Receipt Date: 20131206
  Transmission Date: 20140711
  Serious: No
  Sender: FDA-Public Use
  Company Number: US-009507513-1311USA012112

PATIENT
  Age: 34 Year
  Sex: Female
  Weight: 48.53 kg

DRUGS (1)
  1. NEXPLANON [Suspect]
     Indication: CONTRACEPTION
     Dosage: 1 DF, 3 YEAR IMPLANT
     Route: 059
     Dates: start: 20130627

REACTIONS (3)
  - Amenorrhoea [Recovered/Resolved]
  - Menstrual disorder [Unknown]
  - Pain in extremity [Unknown]
